FAERS Safety Report 22316109 (Version 1)
Quarter: 2023Q2

REPORT INFORMATION
  Report Type: Spontaneous
  Country: US (occurrence: US)
  Receive Date: 20230512
  Receipt Date: 20230512
  Transmission Date: 20230722
  Serious: No
  Sender: FDA-Public Use
  Company Number: US-GALDERMA-US2023004613

PATIENT

DRUGS (4)
  1. TWYNEO [Suspect]
     Active Substance: BENZOYL PEROXIDE\TRETINOIN
     Indication: Acne
     Dosage: 1 DOSAGE FORM, QOD, ONCE EVERY OTHER NIGHT
     Route: 061
     Dates: start: 20230314
  2. TWYNEO [Suspect]
     Active Substance: BENZOYL PEROXIDE\TRETINOIN
     Dosage: 1 DOSAGE FORM, TWICE PER WEEK
     Route: 061
     Dates: start: 202303
  3. SPIRONOLACTONE [Concomitant]
     Active Substance: SPIRONOLACTONE
     Indication: Acne
     Dosage: UNK
     Route: 065
  4. SEYSARA [Concomitant]
     Active Substance: SARECYCLINE HYDROCHLORIDE
     Indication: Acne
     Dosage: 1 DOSAGE FORM
     Route: 065

REACTIONS (3)
  - Dry skin [Not Recovered/Not Resolved]
  - Acne [Unknown]
  - Inappropriate schedule of product administration [Recovered/Resolved]

NARRATIVE: CASE EVENT DATE: 20230301
